FAERS Safety Report 4889937-7 (Version None)
Quarter: 2006Q1

REPORT INFORMATION
  Report Type: 
  Country: None (occurrence: None)
  Receive Date: 20060124
  Receipt Date: 20051205
  Transmission Date: 20060701
  Serious: Yes (Hospitalization)
  Sender: FDA-Public Use
  Company Number: GB-SANOFI-SYNTHELABO-A01200508538

PATIENT
  Age: 60 Year
  Sex: Male

DRUGS (3)
  1. PLAQUENIL [Suspect]
     Indication: CONNECTIVE TISSUE DISORDER
     Route: 048
     Dates: start: 20040726, end: 20051106
  2. PREDNISOLONE [Concomitant]
     Indication: CONNECTIVE TISSUE DISORDER
     Route: 065
     Dates: start: 20030701
  3. FOSAMAX [Concomitant]
     Indication: PROPHYLAXIS
     Route: 065

REACTIONS (4)
  - CARDIOMEGALY [None]
  - CONGESTIVE CARDIOMYOPATHY [None]
  - DYSPNOEA [None]
  - INTRACARDIAC THROMBUS [None]
